FAERS Safety Report 9611565 (Version 1)
Quarter: 2013Q4

REPORT INFORMATION
  Report Type: Spontaneous
  Country: JP (occurrence: JP)
  Receive Date: 20131010
  Receipt Date: 20131010
  Transmission Date: 20140711
  Serious: Yes (Other)
  Sender: FDA-Public Use
  Company Number: PHHY2013JP112919

PATIENT
  Sex: 0

DRUGS (2)
  1. NEORAL [Suspect]
     Route: 048
  2. ALCOHOL [Interacting]

REACTIONS (2)
  - Road traffic accident [Unknown]
  - Breath alcohol test positive [Unknown]
